FAERS Safety Report 4822292-7 (Version None)
Quarter: 2005Q4

REPORT INFORMATION
  Report Type: 
  Country: None (occurrence: None)
  Receive Date: 20051103
  Receipt Date: 20051014
  Transmission Date: 20060501
  Serious: Yes (Hospitalization, Other)
  Sender: FDA-Public Use
  Company Number: USA0510110871

PATIENT
  Age: 79 Year
  Sex: Female
  Weight: 95 kg

DRUGS (2)
  1. HUMALOG MIX 75/25 [Suspect]
     Indication: DIABETES MELLITUS
     Dosage: 35 U/2 DAY
  2. HUMULIN R [Suspect]

REACTIONS (2)
  - FATIGUE [None]
  - HEART RATE DECREASED [None]
